FAERS Safety Report 9703743 (Version 1)
Quarter: 2013Q4

REPORT INFORMATION
  Report Type: Report from Study
  Country: AT (occurrence: AT)
  Receive Date: 20131122
  Receipt Date: 20131122
  Transmission Date: 20140711
  Serious: Yes (Other)
  Sender: FDA-Public Use
  Company Number: PHHY2013AT133965

PATIENT
  Sex: 0

DRUGS (1)
  1. IMATINIB [Suspect]
     Dosage: { 400 MG

REACTIONS (6)
  - Ovarian adenoma [Unknown]
  - Rib fracture [Unknown]
  - Hyperthyroidism [Unknown]
  - Erysipelas [Unknown]
  - Angioedema [Unknown]
  - Pruritus [Unknown]
